FAERS Safety Report 17465530 (Version 2)
Quarter: 2020Q2

REPORT INFORMATION
  Report Type: Spontaneous
  Country: US (occurrence: US)
  Receive Date: 20200227
  Receipt Date: 20200423
  Transmission Date: 20200713
  Serious: Yes (Death, Life-Threatening, Hospitalization)
  Sender: FDA-Public Use
  Company Number: US-DRREDDYS-USA/USA/20/0120097

PATIENT
  Age: 57 Year
  Sex: Male

DRUGS (8)
  1. RITUXIMAB. [Suspect]
     Active Substance: RITUXIMAB
     Indication: IMMUNE THROMBOCYTOPENIA
  2. DEXAMETHASONE SODIUM PHOSPHATE INJECTION, 4 MG/ML [Suspect]
     Active Substance: DEXAMETHASONE SODIUM PHOSPHATE
     Indication: MARGINAL ZONE LYMPHOMA
  3. IMMUNOGLOBULINS NOS [Suspect]
     Active Substance: IMMUNE GLOBULIN NOS
     Indication: GUILLAIN-BARRE SYNDROME
  4. DEXAMETHASONE SODIUM PHOSPHATE INJECTION, 4 MG/ML [Suspect]
     Active Substance: DEXAMETHASONE SODIUM PHOSPHATE
     Indication: IMMUNE THROMBOCYTOPENIA
  5. DEXAMETHASONE SODIUM PHOSPHATE INJECTION, 4 MG/ML [Suspect]
     Active Substance: DEXAMETHASONE SODIUM PHOSPHATE
     Indication: GUILLAIN-BARRE SYNDROME
  6. DEXAMETHASONE SODIUM PHOSPHATE INJECTION, 4 MG/ML [Suspect]
     Active Substance: DEXAMETHASONE SODIUM PHOSPHATE
     Indication: CHRONIC INFLAMMATORY DEMYELINATING POLYRADICULONEUROPATHY
  7. IMMUNOGLOBULINS NOS [Suspect]
     Active Substance: IMMUNE GLOBULIN NOS
     Indication: IMMUNE THROMBOCYTOPENIA
  8. IMMUNOGLOBULINS NOS [Suspect]
     Active Substance: IMMUNE GLOBULIN NOS
     Indication: CHRONIC INFLAMMATORY DEMYELINATING POLYRADICULONEUROPATHY

REACTIONS (1)
  - Septic shock [Fatal]
